FAERS Safety Report 6820148-1 (Version None)
Quarter: 2010Q3

REPORT INFORMATION
  Report Type: 
  Country: None (occurrence: None)
  Receive Date: 20100707
  Receipt Date: 20100628
  Transmission Date: 20110219
  Serious: Yes (Other)
  Sender: FDA-Public Use
  Company Number: JP-MERCK-1006USA04123

PATIENT
  Age: 63 Year
  Sex: Male

DRUGS (8)
  1. JANUVIA [Suspect]
     Indication: TYPE 2 DIABETES MELLITUS
     Route: 048
     Dates: start: 20100417, end: 20100611
  2. DIOVAN [Concomitant]
     Indication: HYPERTENSION
     Route: 048
     Dates: start: 20100416, end: 20100418
  3. DIOVAN [Concomitant]
     Route: 048
     Dates: start: 20100419
  4. VOLTAREN [Concomitant]
     Route: 054
     Dates: start: 20100406
  5. LOXONIN [Concomitant]
     Route: 048
     Dates: start: 20100407, end: 20100428
  6. MUCOSTA [Concomitant]
     Route: 048
     Dates: start: 20100407, end: 20100428
  7. APIDRA [Concomitant]
     Route: 058
     Dates: start: 20100414, end: 20100416
  8. LANTUS [Concomitant]
     Route: 058
     Dates: start: 20100414, end: 20100416

REACTIONS (2)
  - NAIL DISCOLOURATION [None]
  - NAIL DISORDER [None]
